FAERS Safety Report 14561044 (Version 1)
Quarter: 2018Q1

REPORT INFORMATION
  Report Type: Spontaneous
  Country: US (occurrence: US)
  Receive Date: 20180222
  Receipt Date: 20180222
  Transmission Date: 20180509
  Serious: Yes (Hospitalization)
  Sender: FDA-Public Use
  Company Number: US-UNITED THERAPEUTICS-UNT-2018-002086

PATIENT
  Age: 82 Year
  Sex: Male

DRUGS (1)
  1. ORENITRAM [Suspect]
     Active Substance: TREPROSTINIL
     Indication: PULMONARY ARTERIAL HYPERTENSION
     Dosage: 4 MG, TID
     Route: 048
     Dates: start: 20170510

REACTIONS (5)
  - Pulmonary oedema [Unknown]
  - Diarrhoea [Unknown]
  - Dyspnoea [Unknown]
  - Influenza [Unknown]
  - Constipation [Unknown]

NARRATIVE: CASE EVENT DATE: 201801
